FAERS Safety Report 6752307-0 (Version None)
Quarter: 2010Q2

REPORT INFORMATION
  Report Type: 
  Country: None (occurrence: None)
  Receive Date: 20100602
  Receipt Date: 20100527
  Transmission Date: 20101027
  Serious: Yes (Hospitalization, Other)
  Sender: FDA-Public Use
  Company Number: US-JNJFOC-20100510825

PATIENT
  Sex: Female
  Weight: 126.1 kg

DRUGS (14)
  1. FENTANYL CITRATE [Suspect]
     Indication: FIBROMYALGIA
     Route: 062
  2. FENTANYL CITRATE [Suspect]
     Indication: MYALGIA
     Route: 062
  3. FENTANYL CITRATE [Suspect]
     Indication: OSTEOARTHRITIS
     Route: 062
  4. FENTANYL CITRATE [Suspect]
     Route: 062
  5. FENTANYL CITRATE [Suspect]
     Route: 062
  6. FENTANYL CITRATE [Suspect]
     Route: 062
  7. FUROSEMIDE [Concomitant]
     Indication: FLUID RETENTION
     Route: 048
  8. MICARDIS [Concomitant]
     Indication: HYPERTENSION
     Route: 048
  9. METOPROLOL TARTRATE [Concomitant]
     Indication: HYPERTENSION
     Route: 048
  10. SIMVASTATIN [Concomitant]
     Indication: BLOOD CHOLESTEROL INCREASED
     Route: 048
  11. PEPCID AC [Concomitant]
     Indication: GASTROINTESTINAL DISORDER THERAPY
     Route: 048
  12. IRON [Concomitant]
     Indication: SURGERY
     Route: 048
  13. VITAMIN B-12 [Concomitant]
     Indication: SURGERY
     Route: 030
  14. HYDROCODONE [Concomitant]
     Indication: BREAKTHROUGH PAIN
     Dosage: 10/325 MG
     Route: 030

REACTIONS (8)
  - CHEST PAIN [None]
  - CRYING [None]
  - DEPRESSION [None]
  - DRUG INEFFECTIVE [None]
  - OVERWEIGHT [None]
  - RESTLESS LEGS SYNDROME [None]
  - WEIGHT DECREASED [None]
  - WRONG TECHNIQUE IN DRUG USAGE PROCESS [None]
